FAERS Safety Report 13813946 (Version 5)
Quarter: 2017Q4

REPORT INFORMATION
  Report Type: Spontaneous
  Country: US (occurrence: US)
  Receive Date: 20170731
  Receipt Date: 20171211
  Transmission Date: 20180320
  Serious: Yes (Hospitalization, Other)
  Sender: FDA-Public Use
  Company Number: US-PFIZER INC-2017329021

PATIENT
  Age: 54 Year
  Sex: Female
  Weight: 78.91 kg

DRUGS (7)
  1. IBRANCE [Suspect]
     Active Substance: PALBOCICLIB
     Dosage: 75 MG, CYCLIC [DAILY X 21 DAYS 7 DAYS OFF]
     Route: 048
     Dates: end: 201712
  2. IBRANCE [Suspect]
     Active Substance: PALBOCICLIB
     Dosage: 125 MG, CYCLIC (ONCE DAILY, DAYS 1 - 21 EVERY 28 DAYS)
     Route: 048
     Dates: start: 20170822
  3. LETROZOLE. [Suspect]
     Active Substance: LETROZOLE
     Dosage: UNK
  4. IBRANCE [Suspect]
     Active Substance: PALBOCICLIB
     Dosage: 100 MG, UNK
  5. IBRANCE [Suspect]
     Active Substance: PALBOCICLIB
     Indication: BREAST CANCER METASTATIC
     Dosage: 125 MG, CYCLIC (ONCE DAILY, DAYS 1 - 21 EVERY 28 DAYS)
     Route: 048
     Dates: start: 20170703
  6. IBRANCE [Suspect]
     Active Substance: PALBOCICLIB
     Dosage: 75 MG, CYCLIC (D1-21 Q28 DAYS)
     Route: 048
     Dates: start: 20170705, end: 20171030
  7. IBRANCE [Suspect]
     Active Substance: PALBOCICLIB
     Dosage: 125 MG, CYCLIC (ONCE EVERY OTHER DAY UNTIL SHE COMPLETES HER CYCLE)

REACTIONS (4)
  - Fatigue [Unknown]
  - Dehydration [Unknown]
  - Headache [Unknown]
  - Loss of consciousness [Unknown]
